FAERS Safety Report 24900452 (Version 1)
Quarter: 2025Q1

REPORT INFORMATION
  Report Type: Spontaneous
  Country: US (occurrence: None)
  Receive Date: 20250128
  Receipt Date: 20250128
  Transmission Date: 20250409
  Serious: No
  Sender: FDA-CTU
  Company Number: None

PATIENT
  Age: 70 Year
  Sex: Male

DRUGS (1)
  1. APIXABAN [Suspect]
     Active Substance: APIXABAN

REACTIONS (4)
  - Fall [None]
  - Subdural haematoma [None]
  - Haemorrhage [None]
  - Therapy cessation [None]

NARRATIVE: CASE EVENT DATE: 20241206
